FAERS Safety Report 24544765 (Version 1)
Quarter: 2024Q4

REPORT INFORMATION
  Report Type: Spontaneous
  Country: AR (occurrence: AR)
  Receive Date: 20241024
  Receipt Date: 20241024
  Transmission Date: 20250115
  Serious: Yes (Other)
  Sender: ABBVIE
  Company Number: AR-ABBVIE-5974865

PATIENT
  Sex: Female

DRUGS (1)
  1. ADALIMUMAB [Suspect]
     Active Substance: ADALIMUMAB
     Indication: Colitis ulcerative
     Route: 058
     Dates: start: 2016

REACTIONS (4)
  - Macular oedema [Unknown]
  - Central serous chorioretinopathy [Unknown]
  - Stress [Unknown]
  - Eye disorder [Unknown]
